FAERS Safety Report 26134725 (Version 1)
Quarter: 2025Q4

REPORT INFORMATION
  Report Type: Report from Study
  Country: US (occurrence: US)
  Receive Date: 20251209
  Receipt Date: 20251209
  Transmission Date: 20260118
  Serious: Yes (Disabling, Other)
  Sender: ROCHE
  Company Number: US-ROCHE-10000450478

PATIENT
  Sex: Male

DRUGS (1)
  1. HEMLIBRA [Suspect]
     Active Substance: EMICIZUMAB-KXWH
     Indication: Factor VIII deficiency
     Dates: start: 2020

REACTIONS (8)
  - Haemorrhage [Recovered/Resolved]
  - Autism spectrum disorder [Not Recovered/Not Resolved]
  - Fall [Unknown]
  - Face injury [Recovered/Resolved]
  - Contusion [Recovered/Resolved]
  - Head injury [Recovered/Resolved]
  - Scratch [Recovered/Resolved]
  - Fear of injection [Recovered/Resolved]
